FAERS Safety Report 13096854 (Version 1)
Quarter: 2017Q1

REPORT INFORMATION
  Report Type: Spontaneous
  Country: US (occurrence: US)
  Receive Date: 20170106
  Receipt Date: 20170106
  Transmission Date: 20170428
  Serious: Yes (Disabling, Other)
  Sender: FDA-Public Use
  Company Number: None

PATIENT
  Age: 60 Year
  Sex: Female
  Weight: 74.25 kg

DRUGS (5)
  1. SYNTHROID [Concomitant]
     Active Substance: LEVOTHYROXINE SODIUM
  2. PANTOPRAZOLE [Concomitant]
     Active Substance: PANTOPRAZOLE SODIUM
  3. MULTI VITAMIN [Concomitant]
     Active Substance: VITAMINS
  4. CEFDINIR 300 MG PHARMACY FILLED PRESCRIPTION [Suspect]
     Active Substance: CEFDINIR
     Indication: BRONCHITIS
     Dosage: ?          QUANTITY:1 CAPSULE(S);?
     Route: 048
     Dates: start: 20161229, end: 20170104
  5. VITAMIN D [Concomitant]
     Active Substance: CHOLECALCIFEROL

REACTIONS (11)
  - Oropharyngeal pain [None]
  - Hypertension [None]
  - Lip disorder [None]
  - Bronchitis [None]
  - Fatigue [None]
  - Gingival disorder [None]
  - Dyspnoea [None]
  - Joint swelling [None]
  - Headache [None]
  - Urine output decreased [None]
  - Arthralgia [None]

NARRATIVE: CASE EVENT DATE: 20170101
